FAERS Safety Report 7983247-7 (Version None)
Quarter: 2011Q4

REPORT INFORMATION
  Report Type: 
  Country: None (occurrence: None)
  Receive Date: 20111215
  Receipt Date: 20111208
  Transmission Date: 20120403
  Serious: Yes (Other)
  Sender: FDA-Public Use
  Company Number: PHEH2011US011302

PATIENT
  Sex: Male

DRUGS (4)
  1. DIOVAN HCT [Suspect]
     Dosage: 1 DF, (152/25MG) ONCE DAILY
  2. NOVOLOG [Concomitant]
     Indication: BLOOD INSULIN
  3. LEVEMIR [Concomitant]
     Indication: BLOOD INSULIN
     Dosage: 42 U, AT NIGHT
  4. ACETYLSALICYLIC ACID SRT [Concomitant]
     Dosage: 1 DF, (81MG) DAILY

REACTIONS (2)
  - GAIT DISTURBANCE [None]
  - TRANSIENT ISCHAEMIC ATTACK [None]
